FAERS Safety Report 19427248 (Version 1)
Quarter: 2021Q2

REPORT INFORMATION
  Report Type: Spontaneous
  Country: CA (occurrence: CA)
  Receive Date: 20210617
  Receipt Date: 20210617
  Transmission Date: 20210717
  Serious: Yes (Other)
  Sender: FDA-Public Use
  Company Number: CA-ICU MEDICAL, INC.-ICU2021CA00007

PATIENT
  Age: 64 Year
  Sex: Female

DRUGS (5)
  1. BUPIVACAINE. [Suspect]
     Active Substance: BUPIVACAINE
     Indication: SPINAL ANAESTHESIA
     Route: 065
  2. LACTATED RINGERS SOLUTION [Suspect]
     Active Substance: CALCIUM CHLORIDE\POTASSIUM CHLORIDE\SODIUM CHLORIDE\SODIUM LACTATE
     Indication: PRODUCT USED FOR UNKNOWN INDICATION
     Route: 042
  3. MORPHINE [Suspect]
     Active Substance: MORPHINE
     Indication: SPINAL ANAESTHESIA
     Route: 065
  4. FENTANYL. [Suspect]
     Active Substance: FENTANYL
     Indication: SPINAL ANAESTHESIA
     Route: 065
  5. PHENYLEPHRINE HYDROCHLORIDE. [Suspect]
     Active Substance: PHENYLEPHRINE HYDROCHLORIDE
     Indication: PRODUCT USED FOR UNKNOWN INDICATION
     Route: 030

REACTIONS (3)
  - Atrioventricular block second degree [Recovered/Resolved]
  - Bradycardia [Recovered/Resolved]
  - Exposure during pregnancy [Recovered/Resolved]
